FAERS Safety Report 20585950 (Version 2)
Quarter: 2022Q1

REPORT INFORMATION
  Report Type: Spontaneous
  Country: US (occurrence: US)
  Receive Date: 20220312
  Receipt Date: 20220317
  Transmission Date: 20220423
  Serious: Yes (Hospitalization, Other)
  Sender: FDA-Public Use
  Company Number: US-NOVARTISPH-NVSC2022US056120

PATIENT
  Sex: Male

DRUGS (1)
  1. TEGRETOL XR [Suspect]
     Active Substance: CARBAMAZEPINE
     Indication: Product used for unknown indication
     Dosage: UNK (HAD BEEN ON TEGRETOL XR FOR OVER 20 YEARS)
     Route: 065

REACTIONS (7)
  - Cellulite [Unknown]
  - Seizure [Unknown]
  - Necrotising fasciitis [Unknown]
  - Balance disorder [Unknown]
  - Eczema [Unknown]
  - Nystagmus [Unknown]
  - Speech disorder [Unknown]

NARRATIVE: CASE EVENT DATE: 20160101
